FAERS Safety Report 7536633-3 (Version None)
Quarter: 2011Q2

REPORT INFORMATION
  Report Type: 
  Country: None (occurrence: None)
  Receive Date: 20110608
  Receipt Date: 20110608
  Transmission Date: 20111010
  Serious: Yes (Life-Threatening)
  Sender: FDA-Public Use
  Company Number: None

PATIENT
  Age: 58 Year
  Sex: Female
  Weight: 68.9467 kg

DRUGS (2)
  1. VENLAFAXINE HCL EXTENDED-RELEASE [Suspect]
     Indication: DEPRESSION
     Dosage: 75 MG QD PO
     Route: 047
     Dates: start: 20110515, end: 20110602
  2. EFFEXOR XR [Suspect]
     Indication: DEPRESSION
     Dosage: 75 MG QD PO
     Route: 048
     Dates: start: 20100101, end: 20110514

REACTIONS (7)
  - TREMOR [None]
  - HYPERAESTHESIA [None]
  - AGITATION [None]
  - HYPOAESTHESIA [None]
  - HYPERREFLEXIA [None]
  - BACK PAIN [None]
  - ARTHRALGIA [None]
